FAERS Safety Report 10927849 (Version 1)
Quarter: 2015Q1

REPORT INFORMATION
  Report Type: Spontaneous
  Country: FR (occurrence: FR)
  Receive Date: 20150319
  Receipt Date: 20150319
  Transmission Date: 20150721
  Serious: Yes (Hospitalization)
  Sender: FDA-Public Use
  Company Number: PHHY2015FR030365

PATIENT
  Age: 4 Year
  Sex: Male

DRUGS (5)
  1. TRILEPTAL [Suspect]
     Active Substance: OXCARBAZEPINE
     Dosage: 8 MG/KG, QD
     Route: 065
     Dates: start: 20150126
  2. RIVOTRIL [Concomitant]
     Active Substance: CLONAZEPAM
     Indication: SEIZURE
     Dosage: 0.1 MG/KG, QD
     Route: 065
     Dates: start: 20150203
  3. TRILEPTAL [Suspect]
     Active Substance: OXCARBAZEPINE
     Indication: IDIOPATHIC GENERALISED EPILEPSY
     Dosage: 4 MG/KG, QD
     Route: 065
     Dates: start: 20150121, end: 20150125
  4. URBANYL [Concomitant]
     Active Substance: CLOBAZAM
     Indication: SEIZURE
     Dosage: UNK
     Route: 065
     Dates: start: 20150123, end: 20150126
  5. VALIUM [Concomitant]
     Active Substance: DIAZEPAM
     Indication: SEIZURE
     Dosage: UNK
     Route: 054
     Dates: start: 20150123

REACTIONS (3)
  - Encephalopathy [Recovering/Resolving]
  - Abnormal behaviour [Recovering/Resolving]
  - Confusional state [Recovering/Resolving]

NARRATIVE: CASE EVENT DATE: 20150203
